FAERS Safety Report 5905883-1 (Version None)
Quarter: 2008Q4

REPORT INFORMATION
  Report Type: 
  Country: None (occurrence: None)
  Receive Date: 20081001
  Receipt Date: 20081001
  Transmission Date: 20090506
  Serious: No
  Sender: FDA-Public Use
  Company Number: None

PATIENT
  Age: 74 Year
  Sex: Male
  Weight: 104.3273 kg

DRUGS (2)
  1. TRAMADOL HCL [Suspect]
     Indication: ARTHRALGIA
     Dosage: 50 MG 2 X A DAY PO
     Route: 048
     Dates: start: 20080911, end: 20080930
  2. TRAMADOL HCL [Suspect]
     Indication: BACK PAIN
     Dosage: 50 MG 2 X A DAY PO
     Route: 048
     Dates: start: 20080911, end: 20080930

REACTIONS (1)
  - ERECTILE DYSFUNCTION [None]
